FAERS Safety Report 4440736-X (Version None)
Quarter: 2004Q3

REPORT INFORMATION
  Report Type: 
  Country: None (occurrence: None)
  Receive Date: 20040901
  Receipt Date: 20040817
  Transmission Date: 20050211
  Serious: Yes (Life-Threatening, Hospitalization, Other)
  Sender: FDA-Public Use
  Company Number: 600622

PATIENT
  Age: 34 Year
  Sex: Female
  Weight: 48.7 kg

DRUGS (1)
  1. POLYGAM S/D [Suspect]
     Indication: PROPHYLAXIS AGAINST TRANSPLANT REJECTION
     Dosage: 10 GM; INTRAVENOUS
     Route: 042
     Dates: start: 20020129, end: 20020129

REACTIONS (1)
  - MYOCARDIAL INFARCTION [None]
